FAERS Safety Report 21646790 (Version 2)
Quarter: 2024Q2

REPORT INFORMATION
  Report Type: Spontaneous
  Country: FR (occurrence: FR)
  Receive Date: 20221127
  Receipt Date: 20240408
  Transmission Date: 20240716
  Serious: Yes (Hospitalization)
  Sender: FDA-Public Use
  Company Number: None

PATIENT
  Age: 82 Year
  Sex: Male
  Weight: 81 kg

DRUGS (3)
  1. CAPECITABINE [Suspect]
     Active Substance: CAPECITABINE
     Indication: Adenocarcinoma of colon
     Route: 048
     Dates: end: 20211017
  2. COMIRNATY (TOZINAMERAN) [Concomitant]
     Active Substance: TOZINAMERAN
     Indication: COVID-19 immunisation
     Dosage: TIME INTERVAL: TOTAL: D1+D2, 30 MICROGRAMS/DOSE, COVID-19 MRNA (NUCLEOSIDE MODIFIED) VACCINE.
     Route: 030
     Dates: start: 20210304, end: 20210331
  3. COMIRNATY (TOZINAMERAN) [Suspect]
     Active Substance: TOZINAMERAN
     Indication: COVID-19 immunisation
     Dosage: TIME INTERVAL: TOTAL: R1?30 MICROGRAMS/DOSE, COVID-19 MRNA (NUCLEOSIDE MODIFIED) VACCINE.
     Route: 030
     Dates: start: 20211011, end: 20211011

REACTIONS (3)
  - Arthritis [Recovered/Resolved]
  - Cholecystitis [Recovered/Resolved]
  - Deep vein thrombosis [Recovered/Resolved]

NARRATIVE: CASE EVENT DATE: 20211027
